FAERS Safety Report 11793109 (Version 7)
Quarter: 2016Q3

REPORT INFORMATION
  Report Type: Report from Study
  Country: US (occurrence: US)
  Receive Date: 20151202
  Receipt Date: 20160728
  Transmission Date: 20161109
  Serious: Yes (Hospitalization, Congenital Anomaly, Other)
  Sender: FDA-Public Use
  Company Number: US-VIIV HEALTHCARE LIMITED-US2015170953

PATIENT
  Age: 0 Year
  Sex: Female
  Weight: 3.43 kg

DRUGS (10)
  1. TENOFOVIR DISOPROXIL FUMARATE. [Suspect]
     Active Substance: TENOFOVIR DISOPROXIL FUMARATE
     Indication: PROPHYLAXIS AGAINST HIV INFECTION
     Dosage: UNK UNK, QD
     Route: 064
     Dates: start: 20140414, end: 20150320
  2. EMTRICITABINE [Suspect]
     Active Substance: EMTRICITABINE
     Indication: PROPHYLAXIS AGAINST HIV INFECTION
     Dosage: 200 MG, UNK
     Route: 064
     Dates: start: 20150216, end: 20150319
  3. PAROXETINE. [Suspect]
     Active Substance: PAROXETINE
     Indication: DEPRESSION
     Route: 065
  4. MARIJUANA [Concomitant]
     Active Substance: CANNABIS SATIVA SUBSP. INDICA TOP
     Indication: PRODUCT USED FOR UNKNOWN INDICATION
  5. ALCOHOL. [Concomitant]
     Active Substance: ALCOHOL
     Indication: PRODUCT USED FOR UNKNOWN INDICATION
  6. MARAVIROC [Suspect]
     Active Substance: MARAVIROC
     Indication: PROPHYLAXIS AGAINST HIV INFECTION
  7. TOBACCO [Concomitant]
     Active Substance: TOBACCO LEAF
     Indication: TOBACCO USER
  8. MARAVIROC [Suspect]
     Active Substance: MARAVIROC
     Indication: PROPHYLAXIS AGAINST HIV INFECTION
     Dosage: 300 MG, UNK
     Route: 064
     Dates: start: 20150216, end: 20150319
  9. EMTRICITABINE [Suspect]
     Active Substance: EMTRICITABINE
     Indication: PROPHYLAXIS AGAINST HIV INFECTION
  10. TENOFOVIR DISOPROXIL FUMARATE. [Suspect]
     Active Substance: TENOFOVIR DISOPROXIL FUMARATE
     Indication: PROPHYLAXIS AGAINST HIV INFECTION

REACTIONS (9)
  - Neonatal respiratory distress syndrome [Unknown]
  - Atrial septal defect [Unknown]
  - Oxygen supplementation [Unknown]
  - Neonatal tachypnoea [Unknown]
  - Patent ductus arteriosus [Unknown]
  - Syndactyly [Unknown]
  - Foetal exposure during pregnancy [Recovered/Resolved]
  - Congenital choroid plexus cyst [Unknown]
  - Apert^s syndrome [Unknown]

NARRATIVE: CASE EVENT DATE: 20150216
